FAERS Safety Report 11331587 (Version 2)
Quarter: 2016Q1

REPORT INFORMATION
  Report Type: Spontaneous
  Country: US (occurrence: US)
  Receive Date: 20150803
  Receipt Date: 20160303
  Transmission Date: 20160525
  Serious: Yes (Hospitalization, Other)
  Sender: FDA-Public Use
  Company Number: US-ABBVIE-15P-163-1434631-00

PATIENT
  Sex: Female

DRUGS (1)
  1. HUMIRA [Suspect]
     Active Substance: ADALIMUMAB
     Indication: PRODUCT USED FOR UNKNOWN INDICATION
     Route: 065

REACTIONS (10)
  - Pain [Unknown]
  - Crohn^s disease [Unknown]
  - Ankylosing spondylitis [Unknown]
  - Vomiting [Unknown]
  - Neoplasm malignant [Unknown]
  - Nausea [Unknown]
  - Asthenia [Unknown]
  - Impaired work ability [Unknown]
  - Breast cancer [Unknown]
  - Pain [Unknown]

NARRATIVE: CASE EVENT DATE: 201508
